FAERS Safety Report 4402403-8 (Version None)
Quarter: 2004Q3

REPORT INFORMATION
  Report Type: 
  Country: None (occurrence: None)
  Receive Date: 20040720
  Receipt Date: 20040712
  Transmission Date: 20050211
  Serious: Yes (Hospitalization)
  Sender: FDA-Public Use
  Company Number: PHBS2004NL09216

PATIENT
  Age: 22 Year
  Sex: Female

DRUGS (8)
  1. ESTRADIOL [Suspect]
  2. ASPARAGINASE [Concomitant]
  3. CYCLOPHOSPHAMIDE [Concomitant]
  4. CYTARABINE [Concomitant]
  5. DAUNORUBICIN HCL [Concomitant]
  6. IFOSFAMIDE [Concomitant]
  7. METHOTREXATE [Concomitant]
  8. ETOPOSIDE [Concomitant]

REACTIONS (3)
  - AFFECT LABILITY [None]
  - DIFFICULTY IN WALKING [None]
  - HEAD DISCOMFORT [None]
